FAERS Safety Report 5162686-6 (Version None)
Quarter: 2006Q4

REPORT INFORMATION
  Report Type: 
  Country: None (occurrence: None)
  Receive Date: 20061201
  Receipt Date: 20060404
  Transmission Date: 20070319
  Serious: No
  Sender: FDA-Public Use
  Company Number: US-GLAXOSMITHKLINE-A0600355A

PATIENT
  Age: 62 Year
  Sex: Male

DRUGS (2)
  1. AUGMENTIN '125' [Suspect]
     Indication: CELLULITIS
     Dosage: 500MG TWICE PER DAY
     Route: 048
  2. INSULIN [Concomitant]

REACTIONS (1)
  - SKIN IRRITATION [None]
